FAERS Safety Report 8508744 (Version 4)
Quarter: 2012Q4

REPORT INFORMATION
  Report Type: 
  Country: US (occurrence: US)
  Receive Date: 20120412
  Receipt Date: 20121024
  Transmission Date: 20130627
  Serious: Yes (Other)
  Sender: FDA-Public Use
  Company Number: US-ASTRAZENECA-2011SE51495

PATIENT
  Age: 80 Year
  Sex: Female

DRUGS (4)
  1. NEXIUM [Suspect]
     Route: 048
  2. NEXIUM [Suspect]
     Route: 048
  3. NARCOTICS [Concomitant]
  4. ANTIBIOTICS [Concomitant]

REACTIONS (9)
  - Cardiac disorder [Unknown]
  - Gastrooesophageal reflux disease [Unknown]
  - Gastrooesophageal reflux disease [Unknown]
  - Hypoxia [Unknown]
  - Gastric disorder [Unknown]
  - Oesophageal disorder [Unknown]
  - Dysphagia [Unknown]
  - Malaise [Unknown]
  - Drug dose omission [Unknown]
